FAERS Safety Report 11844794 (Version 2)
Quarter: 2016Q1

REPORT INFORMATION
  Report Type: Spontaneous
  Country: US (occurrence: US)
  Receive Date: 20151217
  Receipt Date: 20160111
  Transmission Date: 20160526
  Serious: Yes (Other)
  Sender: FDA-Public Use
  Company Number: US-LPDUSPRD-20151000

PATIENT
  Age: 40 Year
  Sex: Male

DRUGS (4)
  1. OXYCODONE/PARACETAMOL [Suspect]
     Active Substance: ACETAMINOPHEN\OXYCODONE HYDROCHLORIDE
     Dosage: DOSE UNKNOWN
     Route: 065
  2. BUPRENORPHINE HYDROCHLORIDE INJECTION (0725-05) [Suspect]
     Active Substance: BUPRENORPHINE HYDROCHLORIDE
     Dosage: DOSE UNKNOWN
     Route: 065
  3. METAMFETAMINE (METHAMPHETAMINE) [Suspect]
     Active Substance: METHAMPHETAMINE
     Dosage: DOSE UNKNOWN
     Route: 065
  4. ACETAMINOPHEN. [Suspect]
     Active Substance: ACETAMINOPHEN
     Dosage: DOSE NOT PROVIDED
     Route: 065

REACTIONS (1)
  - Drug-induced liver injury [Unknown]

NARRATIVE: CASE EVENT DATE: 201212
